FAERS Safety Report 4925497-X (Version None)
Quarter: 2006Q1

REPORT INFORMATION
  Report Type: 
  Country: None (occurrence: None)
  Receive Date: 20060228
  Receipt Date: 20050304
  Transmission Date: 20060701
  Serious: No
  Sender: FDA-Public Use
  Company Number: US-GLAXOSMITHKLINE-A0548383A

PATIENT
  Sex: Female

DRUGS (4)
  1. LAMICTAL [Suspect]
     Indication: BIPOLAR DISORDER
     Dosage: 200MG PER DAY
     Route: 048
     Dates: start: 20040923
  2. LEVOTHROID [Concomitant]
  3. KLONOPIN [Concomitant]
  4. ESKALITH CR [Concomitant]

REACTIONS (1)
  - GINGIVAL HYPERPLASIA [None]
